FAERS Safety Report 17377095 (Version 1)
Quarter: 2020Q1

REPORT INFORMATION
  Report Type: Spontaneous
  Country: US (occurrence: US)
  Receive Date: 20200122
  Receipt Date: 20200122
  Transmission Date: 20200409
  Serious: Yes (Hospitalization)
  Sender: FDA-Public Use
  Company Number: None

PATIENT
  Age: 78 Year
  Sex: Female

DRUGS (1)
  1. SUTENT [Suspect]
     Active Substance: SUNITINIB MALATE
     Dosage: ?          OTHER FREQUENCY:QDX14ODD7D;?
     Route: 048

REACTIONS (5)
  - Diarrhoea [None]
  - Hypomagnesaemia [None]
  - Therapy cessation [None]
  - Hypokalaemia [None]
  - Anaemia [None]

NARRATIVE: CASE EVENT DATE: 20200106
